FAERS Safety Report 8791203 (Version 1)
Quarter: 2012Q4

REPORT INFORMATION
  Report Type: Spontaneous
  Country: US (occurrence: None)
  Receive Date: 20120911
  Receipt Date: 20120911
  Transmission Date: 20130627
  Serious: Yes (Other)
  Sender: FDA-Public Use
  Company Number: AUR-APL-2012-03781

PATIENT
  Age: 40 Year
  Sex: Female
  Weight: 62 kg

DRUGS (6)
  1. QUETIAPINE [Suspect]
     Indication: DRUG USE FOR UNKNOWN INDICATION
     Dates: start: 20120601
  2. BECLOMETASONE (BECLOMETASONE) [Concomitant]
  3. ERYTHROMYCIN (ERYTHROMYCIN) [Concomitant]
  4. SALBUTAMOL (SALBUTAMOL) [Concomitant]
  5. SODIUM CROMOGLICATE(CROMOGLICATE SODIUM) [Concomitant]
  6. HYDROMOL(HYDROMOL /00906601/) [Concomitant]

REACTIONS (2)
  - Contusion [None]
  - Platelet count decreased [None]
